FAERS Safety Report 6852585-3 (Version None)
Quarter: 2010Q3

REPORT INFORMATION
  Report Type: 
  Country: None (occurrence: None)
  Receive Date: 20100717
  Receipt Date: 20071118
  Transmission Date: 20110219
  Serious: No
  Sender: FDA-Public Use
  Company Number: US-PFIZER INC-2007098000

PATIENT
  Sex: Male
  Weight: 84.1 kg

DRUGS (10)
  1. CHANTIX [Suspect]
     Indication: SMOKING CESSATION THERAPY
     Dates: start: 20071116, end: 20071118
  2. ALBUTEROL [Concomitant]
  3. SPIRIVA [Concomitant]
  4. ADVAIR DISKUS 100/50 [Concomitant]
  5. LISINOPRIL [Concomitant]
  6. METOPROLOL [Concomitant]
  7. SIMVASTATIN [Concomitant]
  8. PREDNISONE [Concomitant]
  9. DARIFENACIN HYDROBROMIDE [Concomitant]
  10. OMEPRAZOLE [Concomitant]

REACTIONS (4)
  - COUGH [None]
  - INSOMNIA [None]
  - NAUSEA [None]
  - VOMITING [None]
